FAERS Safety Report 12404639 (Version 2)
Quarter: 2016Q2

REPORT INFORMATION
  Report Type: Report from Study
  Country: US (occurrence: US)
  Receive Date: 20160525
  Receipt Date: 20160610
  Transmission Date: 20160815
  Serious: Yes (Hospitalization)
  Sender: FDA-Public Use
  Company Number: US-REGENERON PHARMACEUTICALS, INC.-2016-17347

PATIENT

DRUGS (18)
  1. EYLEA [Suspect]
     Active Substance: AFLIBERCEPT
     Dosage: OD
     Route: 031
     Dates: start: 20151009, end: 20151009
  2. EYLEA [Suspect]
     Active Substance: AFLIBERCEPT
     Dosage: OD
     Route: 031
     Dates: start: 20160307, end: 20160307
  3. AMLODIPIN [Concomitant]
     Active Substance: AMLODIPINE BESYLATE
     Indication: PRODUCT USED FOR UNKNOWN INDICATION
     Dosage: UNK
     Dates: start: 20160102
  4. EYLEA [Suspect]
     Active Substance: AFLIBERCEPT
     Indication: RETINAL VEIN OCCLUSION
     Dosage: OD
     Route: 031
     Dates: start: 20150616, end: 20150616
  5. EYLEA [Suspect]
     Active Substance: AFLIBERCEPT
     Dosage: OD
     Route: 031
     Dates: start: 20150910, end: 20150910
  6. EYLEA [Suspect]
     Active Substance: AFLIBERCEPT
     Dosage: OD
     Route: 031
     Dates: start: 20160418
  7. EYLEA [Suspect]
     Active Substance: AFLIBERCEPT
     Dosage: OD
     Route: 031
     Dates: start: 20160204, end: 20160204
  8. LISINOPRIL AND HYDROCHLOROTHIAZIDE [Concomitant]
     Active Substance: HYDROCHLOROTHIAZIDE\LISINOPRIL
     Indication: PRODUCT USED FOR UNKNOWN INDICATION
     Dosage: UNK
     Dates: start: 20150920
  9. EYLEA [Suspect]
     Active Substance: AFLIBERCEPT
     Dosage: OD
     Route: 031
     Dates: start: 20151103, end: 20151103
  10. EYLEA [Suspect]
     Active Substance: AFLIBERCEPT
     Dosage: OD
     Route: 031
     Dates: start: 20160107, end: 20160107
  11. VITAMIN D2 [Concomitant]
     Active Substance: ERGOCALCIFEROL
     Indication: PRODUCT USED FOR UNKNOWN INDICATION
     Dosage: UNK
     Dates: start: 20160102
  12. BABY ASPIRIN [Concomitant]
     Active Substance: ASPIRIN
     Indication: PRODUCT USED FOR UNKNOWN INDICATION
     Dosage: UNK
     Dates: start: 20150920
  13. EYLEA [Suspect]
     Active Substance: AFLIBERCEPT
     Dosage: OD
     Route: 031
     Dates: start: 20150710, end: 20150710
  14. METFORMIN [Concomitant]
     Active Substance: METFORMIN HYDROCHLORIDE
     Indication: PRODUCT USED FOR UNKNOWN INDICATION
     Dosage: UNK
     Dates: start: 20160102
  15. EYLEA [Suspect]
     Active Substance: AFLIBERCEPT
     Dosage: OD
     Route: 031
     Dates: start: 20150818, end: 20150818
  16. EYLEA [Suspect]
     Active Substance: AFLIBERCEPT
     Dosage: OD
     Route: 031
     Dates: start: 20151201, end: 20151201
  17. ATENOLOL. [Concomitant]
     Active Substance: ATENOLOL
     Indication: PRODUCT USED FOR UNKNOWN INDICATION
     Dosage: UNK
     Dates: start: 20110615
  18. ATORVASTATIN [Concomitant]
     Active Substance: ATORVASTATIN
     Indication: PRODUCT USED FOR UNKNOWN INDICATION
     Dosage: UNK
     Dates: start: 20160102

REACTIONS (3)
  - Tremor [Recovered/Resolved]
  - Speech disorder [Recovered/Resolved]
  - Feeling abnormal [Recovered/Resolved]

NARRATIVE: CASE EVENT DATE: 20160502
